FAERS Safety Report 4600610-2 (Version None)
Quarter: 2005Q1

REPORT INFORMATION
  Report Type: 
  Country: None (occurrence: None)
  Receive Date: 20050301
  Receipt Date: 20050211
  Transmission Date: 20050727
  Serious: Yes (Other)
  Sender: FDA-Public Use
  Company Number: 601855

PATIENT
  Age: 2 Year
  Sex: Male

DRUGS (1)
  1. ADVATE   (ANTIHEMOPHILIC FACTOR [Suspect]
     Indication: FACTOR VIII DEFICIENCY
     Dosage: 50 IU/KG; TIW

REACTIONS (1)
  - FACTOR VIII INHIBITION [None]
